FAERS Safety Report 9936284 (Version 1)
Quarter: 2014Q1

REPORT INFORMATION
  Report Type: Spontaneous
  Country: US (occurrence: US)
  Receive Date: 20140228
  Receipt Date: 20140228
  Transmission Date: 20141002
  Serious: No
  Sender: FDA-Public Use
  Company Number: US-AMGEN-USASP2014001864

PATIENT
  Age: 42 Year
  Sex: Female
  Weight: 63.49 kg

DRUGS (5)
  1. ENBREL [Suspect]
     Indication: PSORIATIC ARTHROPATHY
     Dosage: 50 MG, QWK
     Route: 058
     Dates: start: 201301
  2. LOESTRIN [Concomitant]
     Dosage: UNK
  3. PRILOSEC                           /00661201/ [Concomitant]
     Dosage: UNK (OTC)
  4. NAPROXEN [Concomitant]
     Dosage: UNK
  5. VALTREX [Concomitant]
     Dosage: UNK

REACTIONS (4)
  - Nasopharyngitis [Recovered/Resolved]
  - Otitis externa [Recovered/Resolved]
  - Injection site erythema [Recovered/Resolved]
  - Injection site bruising [Recovered/Resolved]
